FAERS Safety Report 7586486-2 (Version None)
Quarter: 2011Q2

REPORT INFORMATION
  Report Type: 
  Country: None (occurrence: None)
  Receive Date: 20110630
  Receipt Date: 20110630
  Transmission Date: 20111010
  Serious: No
  Sender: FDA-Public Use
  Company Number: None

PATIENT
  Sex: Female

DRUGS (1)
  1. XANAX [Suspect]
     Indication: ANXIETY DISORDER
     Dosage: 0.5 MG TIDPRN

REACTIONS (2)
  - ABDOMINAL DISCOMFORT [None]
  - ANXIETY [None]
